FAERS Safety Report 11254987 (Version 1)
Quarter: 2015Q3

REPORT INFORMATION
  Report Type: Spontaneous
  Country: None (occurrence: US)
  Receive Date: 20150709
  Receipt Date: 20150709
  Transmission Date: 20151125
  Serious: No
  Sender: FDA-Public Use
  Company Number: US-MEDAC PHARMA, INC.-1040421

PATIENT
  Age: 13 Year
  Sex: Female

DRUGS (1)
  1. RASUVO [Suspect]
     Active Substance: METHOTREXATE SODIUM
     Route: 058
     Dates: start: 201501

REACTIONS (2)
  - Device malfunction [None]
  - Accidental exposure to product [None]
